FAERS Safety Report 6764388-9 (Version None)
Quarter: 2010Q2

REPORT INFORMATION
  Report Type: 
  Country: None (occurrence: None)
  Receive Date: 20100610
  Receipt Date: 20100602
  Transmission Date: 20101027
  Serious: Yes (Other)
  Sender: FDA-Public Use
  Company Number: FR-PFIZER INC-2010064093

PATIENT
  Age: 57 Year
  Sex: Male

DRUGS (3)
  1. TAHOR [Suspect]
     Indication: CEREBROVASCULAR ACCIDENT
     Dosage: 10 MG, UNK
     Dates: start: 20070101
  2. TAHOR [Suspect]
     Indication: HYPERCHOLESTEROLAEMIA
  3. KARDEGIC [Concomitant]
     Dosage: 160 UNK, UNK

REACTIONS (1)
  - INTERSTITIAL LUNG DISEASE [None]
